FAERS Safety Report 8250122-2 (Version None)
Quarter: 2012Q2

REPORT INFORMATION
  Report Type: 
  Country: None (occurrence: None)
  Receive Date: 20120402
  Receipt Date: 20101220
  Transmission Date: 20120825
  Serious: No
  Sender: FDA-Public Use
  Company Number: US-BAYER-2012-025951

PATIENT
  Sex: Female

DRUGS (4)
  1. LEUKINE [Suspect]
     Indication: MALIGNANT MELANOMA
     Dosage: 250 ?G, UNK
     Route: 058
     Dates: start: 20100701
  2. LORAZEPAM [Concomitant]
     Indication: ANXIETY
     Dosage: 0.5 MG, UNK
  3. CLONAZEPAM [Concomitant]
     Dosage: 1 MG, UNK
  4. METOPROLOL TARTRATE [Concomitant]
     Dosage: 25 MG, UNK

REACTIONS (7)
  - ASTHENIA [None]
  - INFLUENZA LIKE ILLNESS [None]
  - MIGRAINE [None]
  - NAUSEA [None]
  - CYSTITIS [None]
  - FUNGAL INFECTION [None]
  - NASOPHARYNGITIS [None]
